FAERS Safety Report 4564130-6 (Version None)
Quarter: 2005Q1

REPORT INFORMATION
  Report Type: 
  Country: None (occurrence: None)
  Receive Date: 20050126
  Receipt Date: 20050113
  Transmission Date: 20050727
  Serious: No
  Sender: FDA-Public Use
  Company Number: 2005AP00266

PATIENT
  Age: 80 Year
  Sex: Male

DRUGS (1)
  1. CARBOCAIN [Suspect]
     Indication: EPIDURAL ANAESTHESIA

REACTIONS (11)
  - CATHETER SITE ERYTHEMA [None]
  - CATHETER SITE INFECTION [None]
  - EXTRADURAL ABSCESS [None]
  - GASTRIC ULCER HAEMORRHAGE [None]
  - HAEMOGLOBIN DECREASED [None]
  - HEADACHE [None]
  - HELICOBACTER INFECTION [None]
  - MUSCULAR WEAKNESS [None]
  - PURULENCE [None]
  - REFUSAL OF TREATMENT BY PATIENT [None]
  - STAPHYLOCOCCAL INFECTION [None]
